FAERS Safety Report 18145788 (Version 1)
Quarter: 2020Q3

REPORT INFORMATION
  Report Type: Spontaneous
  Country: AU (occurrence: AU)
  Receive Date: 20200813
  Receipt Date: 20200813
  Transmission Date: 20201103
  Serious: Yes (Other)
  Sender: FDA-Public Use
  Company Number: AU-MYLANLABS-2020M1070567

PATIENT
  Sex: Male

DRUGS (1)
  1. CORDILOX 180 SR VERAPAMIL HYDROCHLORIDE 180MG TABLET BLISTER PACK [Suspect]
     Active Substance: VERAPAMIL HYDROCHLORIDE
     Indication: PRODUCT USED FOR UNKNOWN INDICATION
     Dosage: UNK

REACTIONS (2)
  - Supraventricular tachycardia [Recovered/Resolved]
  - Drug intolerance [Unknown]
